FAERS Safety Report 4559214-2 (Version None)
Quarter: 2005Q1

REPORT INFORMATION
  Report Type: 
  Country: None (occurrence: None)
  Receive Date: 20050121
  Receipt Date: 20050121
  Transmission Date: 20050727
  Serious: Yes (Other)
  Sender: FDA-Public Use
  Company Number: None

PATIENT
  Age: 26 Year
  Sex: Female
  Weight: 68.0396 kg

DRUGS (1)
  1. DEPO-PROVERA [Suspect]
     Dosage: 4 TIMES/YEAR

REACTIONS (5)
  - INFERTILITY FEMALE [None]
  - INTRA-UTERINE DEATH [None]
  - LIBIDO DECREASED [None]
  - MATERNAL DRUGS AFFECTING FOETUS [None]
  - MENSTRUATION IRREGULAR [None]
